FAERS Safety Report 4447402-5 (Version None)
Quarter: 2004Q3

REPORT INFORMATION
  Report Type: 
  Country: None (occurrence: None)
  Receive Date: 20040823
  Receipt Date: 20040719
  Transmission Date: 20050211
  Serious: No
  Sender: FDA-Public Use
  Company Number: PHEH2004US07732

PATIENT
  Age: 39 Year
  Sex: Female

DRUGS (3)
  1. ZELNORM [Suspect]
     Indication: IRRITABLE BOWEL SYNDROME
     Dosage: 6 MG QD ORAL
     Route: 048
     Dates: start: 20030801
  2. YASMIN [Suspect]
     Indication: CONTRACEPTION
     Dosage: 1 DOSE FROM QD ORAL
     Route: 048
     Dates: start: 20030701, end: 20040601
  3. MUTLIVITAMINS (PANTHENOL, RETINOL) [Concomitant]

REACTIONS (1)
  - ALOPECIA [None]
